FAERS Safety Report 8497604-6 (Version None)
Quarter: 2012Q3

REPORT INFORMATION
  Report Type: 
  Country: None (occurrence: None)
  Receive Date: 20120709
  Receipt Date: 20120604
  Transmission Date: 20120928
  Serious: No
  Sender: FDA-Public Use
  Company Number: US-AMGEN-USASP2011057239

PATIENT
  Age: 65 Year
  Sex: Female
  Weight: 90.703 kg

DRUGS (6)
  1. TOPAMAX [Concomitant]
  2. SYNTHROID [Concomitant]
  3. SIMVASTATIN [Concomitant]
  4. TRAMADOL HCL [Concomitant]
  5. ENBREL [Suspect]
     Indication: RHEUMATOID ARTHRITIS
     Dosage: 50 MG, QWK
     Route: 058
     Dates: start: 20071201, end: 20110201
  6. EFFEXOR [Concomitant]

REACTIONS (2)
  - WHITE BLOOD CELL COUNT ABNORMAL [None]
  - HAEMOGLOBIN ABNORMAL [None]
